FAERS Safety Report 6138823-3 (Version None)
Quarter: 2009Q1

REPORT INFORMATION
  Report Type: 
  Country: None (occurrence: None)
  Receive Date: 20090327
  Receipt Date: 20090327
  Transmission Date: 20090719
  Serious: Yes (Hospitalization)
  Sender: FDA-Public Use
  Company Number: 2009PL000132

PATIENT
  Age: 57 Year
  Sex: Male

DRUGS (1)
  1. LABETALOL HYDROCHLORIDE [Suspect]
     Indication: MALIGNANT HYPERTENSION
     Dosage: 1200 MG;BID

REACTIONS (4)
  - CHILLS [None]
  - MALAISE [None]
  - PLEURITIC PAIN [None]
  - PYREXIA [None]
